FAERS Safety Report 10017311 (Version 1)
Quarter: 2014Q1

REPORT INFORMATION
  Report Type: Spontaneous
  Country: US (occurrence: None)
  Receive Date: 20140313
  Receipt Date: 20140313
  Transmission Date: 20141002
  Serious: Yes (Other)
  Sender: FDA-Public Use
  Company Number: None

PATIENT
  Age: 61 Year
  Sex: Female
  Weight: 58.06 kg

DRUGS (1)
  1. BOTOX [Suspect]
     Indication: SKIN WRINKLING
     Dosage: 20
     Dates: start: 20140211, end: 20140211

REACTIONS (6)
  - Brow ptosis [None]
  - Vision blurred [None]
  - Confusional state [None]
  - Amnesia [None]
  - Asthenopia [None]
  - Headache [None]
